FAERS Safety Report 8250646-8 (Version None)
Quarter: 2012Q2

REPORT INFORMATION
  Report Type: 
  Country: None (occurrence: None)
  Receive Date: 20120402
  Receipt Date: 20120323
  Transmission Date: 20120825
  Serious: Yes (Other)
  Sender: FDA-Public Use
  Company Number: US-ASTRAZENECA-2012SE15296

PATIENT
  Age: 13255 Day
  Sex: Male

DRUGS (2)
  1. NEXIUM [Suspect]
     Route: 048
  2. ATACAND [Suspect]
     Route: 048

REACTIONS (13)
  - THYROID NEOPLASM [None]
  - NEURITIS [None]
  - RADICULOPATHY [None]
  - CERVICOBRACHIAL SYNDROME [None]
  - HYPERTENSION [None]
  - HIATUS HERNIA [None]
  - POST-TRAUMATIC NECK SYNDROME [None]
  - ROAD TRAFFIC ACCIDENT [None]
  - INTERVERTEBRAL DISC PROTRUSION [None]
  - NERVE INJURY [None]
  - WEIGHT DECREASED [None]
  - BURSITIS [None]
  - HEADACHE [None]
